FAERS Safety Report 13186633 (Version 2)
Quarter: 2017Q1

REPORT INFORMATION
  Report Type: Spontaneous
  Country: US (occurrence: US)
  Receive Date: 20170205
  Receipt Date: 20170309
  Transmission Date: 20170428
  Serious: No
  Sender: FDA-Public Use
  Company Number: US-TAIHO ONCOLOGY INC-EU-2017-00162

PATIENT
  Age: 73 Year
  Sex: Male

DRUGS (5)
  1. MAGONATE [Concomitant]
     Active Substance: MAGNESIUM CARBONATE
     Dosage: NI
  2. SUCRALFATE. [Concomitant]
     Active Substance: SUCRALFATE
     Dosage: NI
  3. D3 MAXIMUM [Concomitant]
     Dosage: NI
  4. LONSURF [Suspect]
     Active Substance: TIPIRACIL HYDROCHLORIDE\TRIFLURIDINE
     Indication: RECTAL CANCER
     Route: 048
     Dates: start: 20160517
  5. FOLIC ACID. [Concomitant]
     Active Substance: FOLIC ACID
     Dosage: NI

REACTIONS (1)
  - Rash macular [Recovering/Resolving]

NARRATIVE: CASE EVENT DATE: 20170130
